FAERS Safety Report 11080567 (Version 2)
Quarter: 2015Q2

REPORT INFORMATION
  Report Type: Spontaneous
  Country: BR (occurrence: BR)
  Receive Date: 20150501
  Receipt Date: 20150510
  Transmission Date: 20150821
  Serious: Yes (Hospitalization)
  Sender: FDA-Public Use
  Company Number: BR-009507513-1504BRA023779

PATIENT
  Age: 17 Year
  Sex: Female
  Weight: 65 kg

DRUGS (3)
  1. NUVARING [Suspect]
     Active Substance: ETHINYL ESTRADIOL\ETONOGESTREL
     Indication: CONTRACEPTION
     Dosage: WEEKS OF USE AND 1 WEEK OF PAUSE
     Route: 067
     Dates: start: 2007
  2. NUVARING [Suspect]
     Active Substance: ETHINYL ESTRADIOL\ETONOGESTREL
     Dosage: WEEKS OF USE AND 1 WEEK OF PAUSE
     Route: 067
     Dates: start: 20150410, end: 20150425
  3. NUVARING [Suspect]
     Active Substance: ETHINYL ESTRADIOL\ETONOGESTREL
     Dosage: WEEKS OF USE AND 1 WEEK OF PAUSE
     Route: 067
     Dates: start: 20150425

REACTIONS (4)
  - Appendicitis [Recovered/Resolved]
  - Vulvovaginal discomfort [Recovered/Resolved]
  - Device breakage [Unknown]
  - Device expulsion [Unknown]

NARRATIVE: CASE EVENT DATE: 2010
